FAERS Safety Report 15623507 (Version 2)
Quarter: 2018Q4

REPORT INFORMATION
  Report Type: Report from Study
  Country: US (occurrence: US)
  Receive Date: 20181115
  Receipt Date: 20181221
  Transmission Date: 20190205
  Serious: Yes (Death, Hospitalization)
  Sender: FDA-Public Use
  Company Number: US-ACTELION-A-NJ2018-165264

PATIENT
  Age: 65 Year
  Sex: Female
  Weight: 63.49 kg

DRUGS (6)
  1. VELETRI [Suspect]
     Active Substance: EPOPROSTENOL
     Indication: PULMONARY HYPERTENSION
     Dosage: 15 NG/KG, PER MIN
     Route: 042
  2. VELETRI [Suspect]
     Active Substance: EPOPROSTENOL
     Dosage: 23 NG/KG, PER MIN
     Route: 042
  3. LETAIRIS [Concomitant]
     Active Substance: AMBRISENTAN
  4. VELETRI [Suspect]
     Active Substance: EPOPROSTENOL
     Dosage: 17 NG/KG, PER MIN
     Route: 042
  5. REVATIO [Concomitant]
     Active Substance: SILDENAFIL CITRATE
  6. VELETRI [Suspect]
     Active Substance: EPOPROSTENOL
     Dosage: 21 NG/KG, PER MIN
     Route: 042
     Dates: start: 20180214

REACTIONS (13)
  - Nasopharyngitis [Unknown]
  - Chills [Unknown]
  - Headache [Unknown]
  - Weight increased [Unknown]
  - Nausea [Unknown]
  - Mitral valve disease [Unknown]
  - Thrombosis in device [Unknown]
  - Dizziness [Unknown]
  - Flushing [Unknown]
  - Mitral valve incompetence [Unknown]
  - Fluid retention [Unknown]
  - Dyspnoea [Unknown]
  - Death [Fatal]

NARRATIVE: CASE EVENT DATE: 20181208
